FAERS Safety Report 16251140 (Version 1)
Quarter: 2019Q2

REPORT INFORMATION
  Report Type: Spontaneous
  Country: US (occurrence: US)
  Receive Date: 20190426
  Receipt Date: 20190426
  Transmission Date: 20190711
  Serious: No
  Sender: FDA-Public Use
  Company Number: None

PATIENT
  Age: 54 Year
  Sex: Female
  Weight: 93.6 kg

DRUGS (1)
  1. COSENTYX [Suspect]
     Active Substance: SECUKINUMAB
     Indication: PSORIATIC ARTHROPATHY
     Dosage: ?          QUANTITY:1 INJECTION(S);OTHER FREQUENCY:1INJECTION PER WEE;OTHER ROUTE:INJECTED TO UPPER THIGH AREA?
     Dates: start: 20190318, end: 20190415

REACTIONS (1)
  - Palmoplantar pustulosis [None]

NARRATIVE: CASE EVENT DATE: 20190321
